FAERS Safety Report 6510245-2 (Version None)
Quarter: 2009Q4

REPORT INFORMATION
  Report Type: 
  Country: None (occurrence: None)
  Receive Date: 20091221
  Receipt Date: 20091221
  Transmission Date: 20100525
  Serious: Yes (Hospitalization)
  Sender: FDA-Public Use
  Company Number: None

PATIENT
  Age: 74 Year
  Sex: Female
  Weight: 68 kg

DRUGS (1)
  1. MULTAQ [Suspect]
     Indication: ATRIAL FIBRILLATION
     Dosage: 400 MG TWICE A DAY OTHER
     Route: 050
     Dates: start: 20091216, end: 20091218

REACTIONS (3)
  - ASTHENIA [None]
  - DYSPNOEA [None]
  - HYPONATRAEMIA [None]
